FAERS Safety Report 9538552 (Version 1)
Quarter: 2013Q2

REPORT INFORMATION
  Report Type: Spontaneous
  Country: US (occurrence: None)
  Receive Date: 20130507
  Receipt Date: 20130507
  Transmission Date: 20140414
  Serious: No
  Sender: FDA-Public Use
  Company Number: PHEH2013US001911

PATIENT
  Age: 76 Year
  Sex: Female

DRUGS (9)
  1. AFINITOR (RAD) UNKNOWN [Suspect]
     Route: 048
  2. BABY ASPIRIN [Concomitant]
  3. DILTIAZEM [Concomitant]
  4. CARDIZEM [Concomitant]
  5. ATENOLOL [Concomitant]
  6. PLAVIX [Concomitant]
  7. AMBIEN [Concomitant]
  8. LEVOTHYROXINE [Concomitant]
  9. ARIMIDEX [Concomitant]

REACTIONS (7)
  - Depression [None]
  - Epistaxis [None]
  - Oedema peripheral [None]
  - Decreased appetite [None]
  - Acne [None]
  - Mouth ulceration [None]
  - Dry skin [None]
